FAERS Safety Report 6875261-X (Version None)
Quarter: 2010Q3

REPORT INFORMATION
  Report Type: 
  Country: None (occurrence: None)
  Receive Date: 20100727
  Receipt Date: 20100715
  Transmission Date: 20110219
  Serious: Yes (Hospitalization)
  Sender: FDA-Public Use
  Company Number: FR-JNJFOC-20100705785

PATIENT
  Age: 71 Year
  Sex: Male

DRUGS (4)
  1. REMICADE [Suspect]
     Indication: CROHN'S DISEASE
     Route: 042
  2. REMICADE [Suspect]
     Route: 042
  3. REMICADE [Suspect]
     Route: 042
  4. HYDROCORTISONE HEMISUCCINATE [Concomitant]
     Indication: PREMEDICATION

REACTIONS (4)
  - BACK PAIN [None]
  - CHEST DISCOMFORT [None]
  - ERYTHEMA [None]
  - INFUSION RELATED REACTION [None]
